FAERS Safety Report 15394074 (Version 1)
Quarter: 2018Q3

REPORT INFORMATION
  Report Type: Report from Study
  Country: None (occurrence: US)
  Receive Date: 20180917
  Receipt Date: 20180917
  Transmission Date: 20181010
  Serious: Yes (Other)
  Sender: FDA-Public Use
  Company Number: US-ABBVIE-18K-163-2482163-00

PATIENT
  Age: 15 Year
  Sex: Female

DRUGS (1)
  1. HUMIRA [Suspect]
     Active Substance: ADALIMUMAB
     Indication: CROHN^S DISEASE
     Route: 058

REACTIONS (9)
  - Abnormal faeces [Not Recovered/Not Resolved]
  - Eczema infected [Unknown]
  - Tumour rupture [Not Recovered/Not Resolved]
  - Neoplasm [Not Recovered/Not Resolved]
  - Purulence [Not Recovered/Not Resolved]
  - Malaise [Not Recovered/Not Resolved]
  - Staphylococcal infection [Unknown]
  - Paronychia [Not Recovered/Not Resolved]
  - Fatigue [Not Recovered/Not Resolved]

NARRATIVE: CASE EVENT DATE: 2018
